FAERS Safety Report 6415652-4 (Version None)
Quarter: 2009Q4

REPORT INFORMATION
  Report Type: 
  Country: None (occurrence: None)
  Receive Date: 20091027
  Receipt Date: 20091019
  Transmission Date: 20100525
  Serious: Yes (Death, Other)
  Sender: FDA-Public Use
  Company Number: GB-ROCHE-663001

PATIENT
  Age: 44 Year
  Sex: Female

DRUGS (6)
  1. CAPECITABINE [Suspect]
     Route: 065
     Dates: start: 20061201
  2. CAPECITABINE [Suspect]
     Dosage: DOSE REDUCED BY 25%
     Route: 065
  3. VINORELBINE [Concomitant]
  4. PACLITAXEL [Concomitant]
  5. LETROZOLE [Concomitant]
     Indication: HORMONE THERAPY
  6. FULVESTRANT [Concomitant]

REACTIONS (2)
  - MALIGNANT NEOPLASM PROGRESSION [None]
  - RECALL PHENOMENON [None]
